FAERS Safety Report 23733565 (Version 1)
Quarter: 2024Q2

REPORT INFORMATION
  Report Type: Spontaneous
  Country: US (occurrence: US)
  Receive Date: 20240411
  Receipt Date: 20240411
  Transmission Date: 20240716
  Serious: Yes (Hospitalization, Other)
  Sender: FDA-Public Use
  Company Number: US-009507513-2404USA001469

PATIENT
  Age: 43 Year
  Sex: Male

DRUGS (2)
  1. BRIDION [Interacting]
     Active Substance: SUGAMMADEX
     Indication: Neuromuscular blockade reversal
     Dosage: 200 MILLIGRAM
  2. GLYCOPYRROLATE [Interacting]
     Active Substance: GLYCOPYRROLATE

REACTIONS (2)
  - Cardiomyopathy [Unknown]
  - Drug interaction [Unknown]
